FAERS Safety Report 20654405 (Version 1)
Quarter: 2022Q1

REPORT INFORMATION
  Report Type: Spontaneous
  Country: ZA (occurrence: ZA)
  Receive Date: 20220330
  Receipt Date: 20220330
  Transmission Date: 20220423
  Serious: Yes (Other)
  Sender: FDA-Public Use
  Company Number: ZA-ABBVIE-22K-143-4337976-00

PATIENT

DRUGS (1)
  1. VALPROATE SODIUM [Suspect]
     Active Substance: VALPROATE SODIUM
     Indication: Product used for unknown indication
     Dosage: 333/145 MG, 200 AND 300MG
     Route: 065

REACTIONS (2)
  - Epilepsy [Unknown]
  - Product physical issue [Unknown]
